FAERS Safety Report 8014358-8 (Version None)
Quarter: 2011Q4

REPORT INFORMATION
  Report Type: 
  Country: None (occurrence: None)
  Receive Date: 20111229
  Receipt Date: 20111221
  Transmission Date: 20120403
  Serious: Yes (Other)
  Sender: FDA-Public Use
  Company Number: PHHY2011JP109326

PATIENT
  Age: 86 Year
  Sex: Female

DRUGS (2)
  1. EXELON [Suspect]
     Indication: DEMENTIA ALZHEIMER'S TYPE
     Dosage: 9 MG, DAILY
     Route: 062
  2. EXELON [Suspect]
     Dosage: 13.5 MG, DAILY
     Route: 062

REACTIONS (3)
  - HALLUCINATION [None]
  - ABNORMAL BEHAVIOUR [None]
  - DELIRIUM [None]
